FAERS Safety Report 10284971 (Version 2)
Quarter: 2014Q3

REPORT INFORMATION
  Report Type: Report from Study
  Country: KR (occurrence: KR)
  Receive Date: 20140708
  Receipt Date: 20140710
  Transmission Date: 20150326
  Serious: Yes (Hospitalization)
  Sender: FDA-Public Use
  Company Number: KR-GLAXOSMITHKLINE-B1010148A

PATIENT
  Age: 64 Year
  Sex: Male
  Weight: 52.5 kg

DRUGS (21)
  1. CALCIUM CARBONATE. [Concomitant]
     Active Substance: CALCIUM CARBONATE
     Indication: ANTACID THERAPY
     Dosage: 500MG PER DAY
     Route: 048
     Dates: start: 20110211, end: 20140524
  2. TRADJENTA [Concomitant]
     Active Substance: LINAGLIPTIN
     Indication: DIABETES MELLITUS
     Dosage: 5MG PER DAY
     Route: 048
     Dates: start: 20130123, end: 20140523
  3. FERROUS SULFATE [Concomitant]
     Active Substance: FERROUS SULFATE\FERROUS SULFATE, DRIED
     Indication: ANAEMIA
     Dosage: 256MG PER DAY
     Dates: start: 20140417, end: 20140523
  4. VOTRIENT [Suspect]
     Active Substance: PAZOPANIB HYDROCHLORIDE
     Indication: RENAL CELL CARCINOMA
     Dosage: 400MG TWICE PER DAY
     Route: 048
     Dates: start: 20140417, end: 20140524
  5. NEURONTIN [Concomitant]
     Active Substance: GABAPENTIN
     Indication: PAIN PROPHYLAXIS
     Dosage: 300MG TWICE PER DAY
     Route: 048
     Dates: start: 20120521, end: 20140523
  6. TANTUM [Concomitant]
     Active Substance: BENZYDAMINE HYDROCHLORIDE
     Indication: STOMATITIS
     Dosage: 100ML THREE TIMES PER DAY
     Dates: start: 20140515, end: 20140524
  7. ALFAROL [Concomitant]
     Active Substance: ALFACALCIDOL
     Indication: VITAMIN D DEFICIENCY
     Dosage: .5MCG TWICE PER DAY
     Route: 048
     Dates: start: 20090706, end: 20140603
  8. TAMSULOSIN HYDROCHLORIDE. [Concomitant]
     Active Substance: TAMSULOSIN HYDROCHLORIDE
     Dosage: .2MG PER DAY
     Route: 048
     Dates: start: 20140417, end: 20140601
  9. ZYLORIC [Concomitant]
     Active Substance: ALLOPURINOL
     Indication: URINE URIC ACID INCREASED
     Dosage: 100MG PER DAY
     Dates: start: 20140517
  10. RHINATHIOL [Concomitant]
     Indication: PRODUCTIVE COUGH
     Dates: start: 20140516, end: 20140526
  11. LASIX [Concomitant]
     Active Substance: FUROSEMIDE
     Indication: DIURETIC THERAPY
     Dosage: 20MG PER DAY
     Dates: start: 20140517, end: 20140605
  12. BEECOM [Concomitant]
     Indication: VITAMIN D DEFICIENCY
     Dates: start: 20090706, end: 20140523
  13. PHENIRAMINE [Concomitant]
     Active Substance: PHENIRAMINE
     Indication: ANTIALLERGIC THERAPY
     Dates: start: 20140516, end: 20140526
  14. ALBUMIN [Concomitant]
     Active Substance: ALBUMIN (HUMAN)
     Indication: BLOOD ELECTROLYTES ABNORMAL
     Dosage: 200MG PER DAY
     Dates: start: 20140517, end: 20140601
  15. DILATREND [Concomitant]
     Active Substance: CARVEDILOL
     Indication: HYPERTENSION
     Dosage: 25MG TWICE PER DAY
     Route: 048
     Dates: start: 20090706, end: 20140524
  16. NYSTATIN. [Concomitant]
     Active Substance: NYSTATIN
     Indication: PROPHYLAXIS
     Dosage: 2ML TWICE PER DAY
     Dates: start: 20140509
  17. COUGH SYRUP [Concomitant]
     Active Substance: DEXTROMETHORPHAN HYDROBROMIDE\GUAIFENESIN
     Indication: PRODUCTIVE COUGH
     Dosage: 60MG PER DAY
     Dates: start: 20140516, end: 20140526
  18. BISOLVON [Concomitant]
     Active Substance: BROMHEXINE HYDROCHLORIDE
     Indication: PRODUCTIVE COUGH
     Dates: start: 20140517, end: 20140517
  19. SANDIMMUN NEORAL [Concomitant]
     Active Substance: CYCLOSPORINE
     Indication: IMMUNOSUPPRESSION
     Dosage: 100MG TWICE PER DAY
     Route: 048
     Dates: start: 20090706, end: 20140506
  20. CALCORT [Concomitant]
     Active Substance: DEFLAZACORT
     Dosage: 6MG TWICE PER DAY
     Route: 048
     Dates: start: 20090706, end: 20140623
  21. ALBIS [Concomitant]
     Active Substance: BISMUTH SUBCITRATE\RANITIDINE HYDROCHLORIDE\SUCRALFATE
     Indication: GASTROINTESTINAL DISORDER
     Dosage: 1TAB TWICE PER DAY
     Dates: start: 20140430, end: 20140515

REACTIONS (1)
  - Renal impairment [Recovered/Resolved with Sequelae]

NARRATIVE: CASE EVENT DATE: 20140515
